FAERS Safety Report 6185567-8 (Version None)
Quarter: 2009Q2

REPORT INFORMATION
  Report Type: 
  Country: None (occurrence: None)
  Receive Date: 20090511
  Receipt Date: 20090430
  Transmission Date: 20091009
  Serious: Yes (Hospitalization, Other)
  Sender: FDA-Public Use
  Company Number: US-ALEXION-A200900299

PATIENT
  Sex: Female

DRUGS (1)
  1. SOLIRIS [Suspect]
     Dosage: UNK
     Route: 042

REACTIONS (5)
  - CATHETER SEPSIS [None]
  - INFECTION [None]
  - LEUKOCYTOSIS [None]
  - PYREXIA [None]
  - URINARY TRACT INFECTION [None]
